FAERS Safety Report 13611932 (Version 1)
Quarter: 2017Q2

REPORT INFORMATION
  Report Type: Spontaneous
  Country: US (occurrence: US)
  Receive Date: 20170605
  Receipt Date: 20170605
  Transmission Date: 20170830
  Serious: Yes (Hospitalization)
  Sender: FDA-Public Use
  Company Number: None

PATIENT
  Age: 74 Year
  Sex: Female
  Weight: 80.31 kg

DRUGS (2)
  1. PROLIA [Suspect]
     Active Substance: DENOSUMAB
     Indication: OSTEOPOROSIS
     Dosage: ?          OTHER FREQUENCY:6 MONTHS;?
     Route: 058
     Dates: start: 20170504
  2. PREDNISONE. [Concomitant]
     Active Substance: PREDNISONE

REACTIONS (6)
  - Back pain [None]
  - Muscle tightness [None]
  - Fractured sacrum [None]
  - Stress fracture [None]
  - Arthralgia [None]
  - Myalgia [None]

NARRATIVE: CASE EVENT DATE: 20170603
